FAERS Safety Report 13266077 (Version 3)
Quarter: 2017Q3

REPORT INFORMATION
  Report Type: Report from Study
  Country: None (occurrence: SE)
  Receive Date: 20170223
  Receipt Date: 20170921
  Transmission Date: 20171127
  Serious: Yes (Hospitalization)
  Sender: FDA-Public Use
  Company Number: SE-ABBVIE-17P-150-1878891-00

PATIENT
  Age: 70 Year
  Sex: Male

DRUGS (4)
  1. DUODOPA [Suspect]
     Active Substance: CARBIDOPA\LEVODOPA
     Dosage: MORNING DOSAGE: 6.5 ML, CONTINUOUS DOSAGE: 3.0 ML/HR, XD: 0.7ML
     Route: 050
     Dates: start: 20170224, end: 2017
  2. DUODOPA [Suspect]
     Active Substance: CARBIDOPA\LEVODOPA
     Dosage: MORNING DOSAGE: 6.5 ML, CONTINUOUS DOSAGE: 2.8 ML/HR, XD: 0.7ML
     Route: 050
     Dates: start: 20170210, end: 20170224
  3. DUODOPA [Suspect]
     Active Substance: CARBIDOPA\LEVODOPA
     Indication: PARKINSON^S DISEASE
     Route: 050
     Dates: start: 20161213, end: 20170210
  4. DUODOPA [Suspect]
     Active Substance: CARBIDOPA\LEVODOPA
     Dosage: MORNING DOSE 6.5ML, CONTINUOUS DOSE 3.2 ML/H, EXTRA DOSE 0.7ML
     Route: 050
     Dates: start: 2017

REACTIONS (3)
  - C-reactive protein increased [Not Recovered/Not Resolved]
  - Pneumonia [Unknown]
  - Musculoskeletal stiffness [Not Recovered/Not Resolved]

NARRATIVE: CASE EVENT DATE: 201702
